FAERS Safety Report 21308223 (Version 1)
Quarter: 2022Q3

REPORT INFORMATION
  Report Type: Report from Study
  Country: US (occurrence: US)
  Receive Date: 20220908
  Receipt Date: 20220908
  Transmission Date: 20221027
  Serious: Yes (Death, Other)
  Sender: FDA-Public Use
  Company Number: US-PFIZER INC-202201114808

PATIENT
  Age: 82 Year
  Sex: Female

DRUGS (1)
  1. LINEZOLID [Suspect]
     Active Substance: LINEZOLID
     Indication: Medical device site joint infection
     Dosage: UNK

REACTIONS (3)
  - Acute kidney injury [Fatal]
  - Hepatitis [Fatal]
  - Lactic acidosis [Fatal]
